FAERS Safety Report 10072145 (Version 1)
Quarter: 2014Q2

REPORT INFORMATION
  Report Type: Spontaneous
  Country: US (occurrence: None)
  Receive Date: 20140410
  Receipt Date: 20140410
  Transmission Date: 20141212
  Serious: Yes (Disabling, Other)
  Sender: FDA-Public Use
  Company Number: None

PATIENT
  Age: 20 Year
  Sex: Female
  Weight: 56.7 kg

DRUGS (1)
  1. LEXAPRO [Suspect]
     Indication: MAJOR DEPRESSION
     Dosage: 1 PILL  ONCE DAILY TAKEN BY MOUTH?A FEW MONTHS (3-6 AT MOST)
     Route: 048

REACTIONS (15)
  - Sexual dysfunction [None]
  - Hypoaesthesia [None]
  - Vaginal disorder [None]
  - Anorgasmia [None]
  - Orgasm abnormal [None]
  - Self-injurious ideation [None]
  - Quality of life decreased [None]
  - Frustration [None]
  - Bulimia nervosa [None]
  - Intentional self-injury [None]
  - Insomnia [None]
  - Impaired work ability [None]
  - Anhedonia [None]
  - Post-traumatic stress disorder [None]
  - Condition aggravated [None]
